FAERS Safety Report 21124490 (Version 1)
Quarter: 2022Q3

REPORT INFORMATION
  Report Type: Spontaneous
  Country: US (occurrence: US)
  Receive Date: 20220725
  Receipt Date: 20220725
  Transmission Date: 20221027
  Serious: Yes (Other)
  Sender: FDA-Public Use
  Company Number: US-009507513-2207USA005429

PATIENT
  Sex: Male

DRUGS (4)
  1. KEYTRUDA [Suspect]
     Active Substance: PEMBROLIZUMAB
     Indication: Non-small cell lung cancer
     Dosage: 200 MILLIGRAM, EVERY 3 WEEKS; A TOTAL OF 6 TREATMENTS
     Route: 042
     Dates: start: 201801, end: 2018
  2. KEYTRUDA [Suspect]
     Active Substance: PEMBROLIZUMAB
     Dosage: 200 MILLIGRAM, EVERY 3 WEEKS; 2 TREATMENTS
     Route: 042
     Dates: start: 2018, end: 2018
  3. CARBOPLATIN [Suspect]
     Active Substance: CARBOPLATIN
     Indication: Non-small cell lung cancer
     Dosage: UNK
     Dates: start: 201801
  4. ALIMTA [Suspect]
     Active Substance: PEMETREXED DISODIUM
     Indication: Non-small cell lung cancer
     Dosage: UNK
     Dates: start: 201801

REACTIONS (8)
  - Autoimmune disorder [Unknown]
  - Nephritis [Not Recovered/Not Resolved]
  - Connective tissue disorder [Not Recovered/Not Resolved]
  - Gastritis [Not Recovered/Not Resolved]
  - Colitis [Recovered/Resolved]
  - Pneumonitis [Recovered/Resolved]
  - Colitis [Not Recovered/Not Resolved]
  - Pneumonitis [Not Recovered/Not Resolved]

NARRATIVE: CASE EVENT DATE: 20180101
